FAERS Safety Report 18335561 (Version 2)
Quarter: 2020Q4

REPORT INFORMATION
  Report Type: Spontaneous
  Country: US (occurrence: US)
  Receive Date: 20201001
  Receipt Date: 20201006
  Transmission Date: 20210113
  Serious: Yes (Hospitalization, Other)
  Sender: FDA-Public Use
  Company Number: US-ASTRAZENECA-2020SF25334

PATIENT
  Age: 16340 Day
  Sex: Male
  Weight: 139.7 kg

DRUGS (37)
  1. FARXIGA [Suspect]
     Active Substance: DAPAGLIFLOZIN PROPANEDIOL
     Indication: TYPE 2 DIABETES MELLITUS
     Route: 048
     Dates: start: 20160728
  2. ENALAPRIL [Concomitant]
     Active Substance: ENALAPRIL
     Dates: start: 20181016
  3. PIOGLITAZONE. [Concomitant]
     Active Substance: PIOGLITAZONE
     Dates: start: 20181016
  4. VICTOZA [Concomitant]
     Active Substance: LIRAGLUTIDE
     Dates: start: 20190315
  5. LEVOFLOXACIN. [Concomitant]
     Active Substance: LEVOFLOXACIN
     Dates: start: 20180831
  6. ROSUVASTATIN. [Concomitant]
     Active Substance: ROSUVASTATIN
     Dates: start: 20170919
  7. ONDANSETRON [Concomitant]
     Active Substance: ONDANSETRON
     Dates: start: 20150708
  8. NAPROXEN. [Concomitant]
     Active Substance: NAPROXEN
     Dates: start: 20190326
  9. ONGLYZA [Concomitant]
     Active Substance: SAXAGLIPTIN HYDROCHLORIDE
     Dates: start: 20160816
  10. ATORVASTATIN [Concomitant]
     Active Substance: ATORVASTATIN
  11. PROMETHAZINE [Concomitant]
     Active Substance: PROMETHAZINE HYDROCHLORIDE
     Dates: start: 20160616
  12. JANUMET [Concomitant]
     Active Substance: METFORMIN HYDROCHLORIDE\SITAGLIPTIN PHOSPHATE
     Dates: start: 20140829
  13. FARXIGA [Suspect]
     Active Substance: DAPAGLIFLOZIN PROPANEDIOL
     Indication: TYPE 2 DIABETES MELLITUS
     Route: 048
     Dates: start: 20150130, end: 201504
  14. TANZEUM [Concomitant]
     Active Substance: ALBIGLUTIDE
     Dates: start: 20170919
  15. IBUPROFEN. [Concomitant]
     Active Substance: IBUPROFEN
     Dates: start: 20151218
  16. FENOFIBRATE. [Concomitant]
     Active Substance: FENOFIBRATE
     Dates: start: 20170720
  17. HYOSCYAMINE. [Concomitant]
     Active Substance: HYOSCYAMINE
     Dates: start: 20151015
  18. METRONIDAZOLE. [Concomitant]
     Active Substance: METRONIDAZOLE
     Dates: start: 20160616
  19. FARXIGA [Suspect]
     Active Substance: DAPAGLIFLOZIN PROPANEDIOL
     Indication: TYPE 2 DIABETES MELLITUS
     Route: 048
     Dates: start: 20180425
  20. FARXIGA [Suspect]
     Active Substance: DAPAGLIFLOZIN PROPANEDIOL
     Indication: TYPE 2 DIABETES MELLITUS
     Route: 048
     Dates: start: 20140926
  21. NOVOLOG [Concomitant]
     Active Substance: INSULIN ASPART
     Dates: start: 20140829
  22. GLIMEPIRIDE. [Concomitant]
     Active Substance: GLIMEPIRIDE
  23. TRAMADOL. [Concomitant]
     Active Substance: TRAMADOL
     Dates: start: 20160616
  24. SYMBICORT [Concomitant]
     Active Substance: BUDESONIDE\FORMOTEROL FUMARATE DIHYDRATE
     Dates: start: 20150423
  25. CLINDAMYCIN. [Concomitant]
     Active Substance: CLINDAMYCIN
     Dates: start: 20150520
  26. NITROGLYCERINE [Concomitant]
     Active Substance: NITROGLYCERIN
     Dates: start: 20181108
  27. LIVALO [Concomitant]
     Active Substance: PITAVASTATIN CALCIUM
     Dates: start: 20190706
  28. PROAIR HFA [Concomitant]
     Active Substance: ALBUTEROL SULFATE
     Dates: start: 20180831
  29. AMOXICILLIN. [Concomitant]
     Active Substance: AMOXICILLIN
     Dates: start: 20160311
  30. PRAVACHOL [Concomitant]
     Active Substance: PRAVASTATIN SODIUM
  31. OMEPRAZOLE. [Concomitant]
     Active Substance: OMEPRAZOLE
     Dates: start: 20180823
  32. METFORMIN [Concomitant]
     Active Substance: METFORMIN HYDROCHLORIDE
  33. SILDENAFIL. [Concomitant]
     Active Substance: SILDENAFIL
     Dates: start: 20190316
  34. LEVEMIR [Concomitant]
     Active Substance: INSULIN DETEMIR
     Dates: start: 20170410
  35. HYDROCODONE [Concomitant]
     Active Substance: HYDROCODONE
     Dates: start: 20151118
  36. CIPROFLOXACIN. [Concomitant]
     Active Substance: CIPROFLOXACIN
     Dates: start: 20160616
  37. PREDNISONE. [Concomitant]
     Active Substance: PREDNISONE
     Dates: start: 20160311

REACTIONS (11)
  - Anal abscess [Unknown]
  - Anal incontinence [Unknown]
  - Carbuncle [Unknown]
  - Perineal abscess [Unknown]
  - Nerve injury [Unknown]
  - Scrotal abscess [Unknown]
  - Fournier^s gangrene [Unknown]
  - Penile abscess [Unknown]
  - Rectal abscess [Unknown]
  - Pain [Unknown]
  - Scar [Unknown]

NARRATIVE: CASE EVENT DATE: 20141211
